FAERS Safety Report 8776405 (Version 1)
Quarter: 2012Q4

REPORT INFORMATION
  Report Type: 
  Country: CH (occurrence: CH)
  Receive Date: 20120911
  Receipt Date: 20120911
  Transmission Date: 20130627
  Serious: Yes (Hospitalization)
  Sender: FDA-Public Use
  Company Number: PHHY2012CH077480

PATIENT
  Age: 62 Year
  Sex: Male

DRUGS (1)
  1. CICLOSPORIN [Suspect]
     Indication: LIVER TRANSPLANT
     Route: 048
     Dates: start: 200811, end: 201204

REACTIONS (6)
  - Diabetic nephropathy [Unknown]
  - Renal failure chronic [Unknown]
  - Nephropathy toxic [Unknown]
  - Toxicity to various agents [Unknown]
  - Intercapillary glomerulosclerosis [Unknown]
  - Blood creatinine increased [Unknown]
